FAERS Safety Report 25030703 (Version 1)
Quarter: 2025Q1

REPORT INFORMATION
  Report Type: Report from Study
  Country: JP (occurrence: JP)
  Receive Date: 20250303
  Receipt Date: 20250303
  Transmission Date: 20250408
  Serious: Yes (Other)
  Sender: JOHNSON AND JOHNSON
  Company Number: JP-JNJFOC-20250268148

PATIENT

DRUGS (1)
  1. REMICADE [Suspect]
     Active Substance: INFLIXIMAB
     Indication: Product used for unknown indication
     Route: 041

REACTIONS (12)
  - Interstitial lung disease [Unknown]
  - Acute respiratory failure [Unknown]
  - Atrial fibrillation [Unknown]
  - Myelodysplastic syndrome [Unknown]
  - Organising pneumonia [Unknown]
  - Abdominal distension [Unknown]
  - Decreased appetite [Unknown]
  - Asthma [Unknown]
  - Arthropathy [Unknown]
  - Respiratory tract infection [Unknown]
  - Oral fungal infection [Unknown]
  - Pyrexia [Unknown]
